FAERS Safety Report 22630294 (Version 1)
Quarter: 2023Q2

REPORT INFORMATION
  Report Type: Spontaneous
  Country: RO (occurrence: RO)
  Receive Date: 20230622
  Receipt Date: 20230622
  Transmission Date: 20230721
  Serious: Yes (Other)
  Sender: FDA-Public Use
  Company Number: RO-UCBSA-2023031188

PATIENT
  Age: 26 Year
  Sex: Female

DRUGS (10)
  1. CERTOLIZUMAB PEGOL [Suspect]
     Active Substance: CERTOLIZUMAB PEGOL
     Indication: Rheumatoid arthritis
     Dosage: UNK
  2. CERTOLIZUMAB PEGOL [Suspect]
     Active Substance: CERTOLIZUMAB PEGOL
     Indication: Spondyloarthropathy
  3. METHOTREXATE [Suspect]
     Active Substance: METHOTREXATE
     Indication: Rheumatoid arthritis
     Dosage: 10 MILLIGRAM, WEEKLY
  4. METHOTREXATE [Suspect]
     Active Substance: METHOTREXATE
     Indication: Spondyloarthropathy
  5. FOLIC ACID [Suspect]
     Active Substance: FOLIC ACID
     Indication: Rheumatoid arthritis
     Dosage: UNK
  6. FOLIC ACID [Suspect]
     Active Substance: FOLIC ACID
     Indication: Spondyloarthropathy
  7. SULFASALAZINE [Suspect]
     Active Substance: SULFASALAZINE
     Indication: Spondyloarthropathy
     Dosage: 2 GRAM, ONCE DAILY (QD)/DAY
  8. SULFASALAZINE [Suspect]
     Active Substance: SULFASALAZINE
     Indication: Rheumatoid arthritis
  9. SOLU-MEDROL [Suspect]
     Active Substance: METHYLPREDNISOLONE SODIUM SUCCINATE
     Indication: Rheumatoid arthritis
     Dosage: 1 GRAM, EVERY OTHER DAY
     Route: 042
  10. SOLU-MEDROL [Suspect]
     Active Substance: METHYLPREDNISOLONE SODIUM SUCCINATE
     Indication: Spondyloarthropathy

REACTIONS (4)
  - Spondyloarthropathy [Unknown]
  - Rheumatoid arthritis [Unknown]
  - Uveitis [Unknown]
  - Maternal exposure during pregnancy [Unknown]
